FAERS Safety Report 11224030 (Version 1)
Quarter: 2015Q2

REPORT INFORMATION
  Report Type: Spontaneous
  Country: FR (occurrence: None)
  Receive Date: 20150625
  Receipt Date: 20150625
  Transmission Date: 20150821
  Serious: Yes (Hospitalization)
  Sender: FDA-Public Use
  Company Number: 8030857

PATIENT
  Age: 80 Year
  Sex: Female

DRUGS (6)
  1. LEVOTHYROX (LEVOTHYROXINE SODIUM) (LEVOTHYROXINE SODIUM) [Suspect]
     Active Substance: LEVOTHYROXINE SODIUM
     Indication: HYPOTHYROIDISM
     Dosage: 100 - 125 ALTERNATING DOSE
     Route: 048
  2. CORDARONE [Suspect]
     Active Substance: AMIODARONE HYDROCHLORIDE
     Indication: ATRIAL FIBRILLATION
     Route: 048
  3. MONOTILDIEM (DILTIAZEM HYDROCHLORIDE) [Concomitant]
  4. PREVISCAN (FLUINDIONE) [Suspect]
     Active Substance: FLUINDIONE
     Indication: ATRIAL FIBRILLATION
     Dosage: 1/2 - 1/4 TABLET ALTERNATING DOSE
     Route: 048
     Dates: start: 200805, end: 20150114
  5. TAHOR [Concomitant]
     Active Substance: ATORVASTATIN CALCIUM
  6. INIPOMP (PANTOPRAZOLE SODIUM SESQUIHYDRATE) [Concomitant]

REACTIONS (13)
  - Platelet count increased [None]
  - Vitamin B12 deficiency [None]
  - Arrhythmia [None]
  - Drug interaction [None]
  - Blood pressure systolic increased [None]
  - Gastric polyps [None]
  - Adenocarcinoma of colon [None]
  - Melaena [None]
  - Large intestine polyp [None]
  - Angina pectoris [None]
  - Cardiac murmur [None]
  - Intussusception [None]
  - Iron deficiency anaemia [None]

NARRATIVE: CASE EVENT DATE: 20150114
